FAERS Safety Report 4888540-2 (Version None)
Quarter: 2005Q4

REPORT INFORMATION
  Report Type: 
  Country: None (occurrence: None)
  Receive Date: 20051215
  Receipt Date: 20050815
  Transmission Date: 20060501
  Serious: Yes (Hospitalization, Other)
  Sender: FDA-Public Use
  Company Number: 2005063202

PATIENT
  Age: 45 Year
  Sex: Male
  Weight: 83.9154 kg

DRUGS (5)
  1. BEXTRA [Suspect]
     Indication: BACK INJURY
     Dosage: 20 MG (20 MG, 1 IN 1 D), ORAL
     Route: 048
     Dates: start: 20041004, end: 20041007
  2. ALTACE [Concomitant]
  3. LIPITOR [Concomitant]
  4. PRAVACHOL [Concomitant]
  5. ECOTRIN (ACETYLSALICYLIC ACID) [Concomitant]

REACTIONS (2)
  - ACUTE MYOCARDIAL INFARCTION [None]
  - WEIGHT INCREASED [None]
